FAERS Safety Report 7617992-X (Version None)
Quarter: 2011Q3

REPORT INFORMATION
  Report Type: 
  Country: None (occurrence: None)
  Receive Date: 20110718
  Receipt Date: 20110713
  Transmission Date: 20111222
  Serious: No
  Sender: FDA-Public Use
  Company Number: US-PFIZER INC-2011159010

PATIENT
  Sex: Female
  Weight: 63.492 kg

DRUGS (2)
  1. IBUPROFEN (ADVIL) [Suspect]
     Indication: ARTHRALGIA
     Dosage: 200 MG, 1X/DAY
     Route: 048
     Dates: start: 20110711
  2. IBUPROFEN (ADVIL) [Suspect]
     Indication: PAIN IN EXTREMITY

REACTIONS (2)
  - DIZZINESS [None]
  - SOMNOLENCE [None]
